FAERS Safety Report 7411920 (Version 4)
Quarter: 2015Q2

REPORT INFORMATION
  Report Type: Spontaneous
  Country: BR (occurrence: BR)
  Receive Date: 20100607
  Receipt Date: 20150630
  Transmission Date: 20150821
  Serious: Yes (Other)
  Sender: FDA-Public Use
  Company Number: BR-ROCHE-706251

PATIENT
  Age: 19 Year
  Sex: Male
  Weight: 97 kg

DRUGS (6)
  1. BACTRIM [Suspect]
     Active Substance: SULFAMETHOXAZOLE\TRIMETHOPRIM
     Indication: ACNE
     Route: 065
     Dates: start: 2011, end: 2014
  2. ROACUTAN [Suspect]
     Active Substance: ISOTRETINOIN
     Indication: ACNE
     Route: 048
     Dates: start: 200712, end: 200805
  3. ROACUTAN [Suspect]
     Active Substance: ISOTRETINOIN
     Route: 048
  4. BACTRIM [Suspect]
     Active Substance: SULFAMETHOXAZOLE\TRIMETHOPRIM
     Indication: ACNE
     Route: 065
  5. COCOA BUTTER [Concomitant]
     Active Substance: COCOA BUTTER\PETROLATUM
     Indication: LIP DRY
     Route: 061
  6. BEER YEAST [Concomitant]

REACTIONS (19)
  - Lip dry [Unknown]
  - Insomnia [Not Recovered/Not Resolved]
  - Nausea [Unknown]
  - Weight decreased [Unknown]
  - Folliculitis [Not Recovered/Not Resolved]
  - Basal ganglia infarction [Unknown]
  - Decreased appetite [Recovered/Resolved]
  - Infarction [Recovering/Resolving]
  - Acne [Not Recovered/Not Resolved]
  - Headache [Unknown]
  - Dry eye [Recovered/Resolved]
  - Dry mouth [Not Recovered/Not Resolved]
  - Ocular hyperaemia [Unknown]
  - Dry skin [Unknown]
  - Weight increased [Unknown]
  - Dengue fever [Recovered/Resolved]
  - Staphylococcal infection [Unknown]
  - Cerebral infarction [Not Recovered/Not Resolved]
  - Lymphadenopathy [Not Recovered/Not Resolved]

NARRATIVE: CASE EVENT DATE: 201007
